FAERS Safety Report 9298480 (Version 1)
Quarter: 2013Q2

REPORT INFORMATION
  Report Type: Spontaneous
  Country: US (occurrence: US)
  Receive Date: 20130520
  Receipt Date: 20130520
  Transmission Date: 20140414
  Serious: Yes (Other)
  Sender: FDA-Public Use
  Company Number: US-ASTRAZENECA-2013SE33124

PATIENT
  Age: 64 Year
  Sex: Female
  Weight: 68 kg

DRUGS (2)
  1. CAPRELSA [Suspect]
     Route: 048
     Dates: start: 2011
  2. CAPRELSA [Suspect]
     Route: 048

REACTIONS (1)
  - Electrocardiogram QT prolonged [Unknown]
